FAERS Safety Report 7412759-X (Version None)
Quarter: 2011Q2

REPORT INFORMATION
  Report Type: 
  Country: None (occurrence: None)
  Receive Date: 20110413
  Receipt Date: 20110408
  Transmission Date: 20111010
  Serious: Yes (Congenital Anomaly)
  Sender: FDA-Public Use
  Company Number: A0918161A

PATIENT
  Sex: Male
  Weight: 3.2 kg

DRUGS (2)
  1. PAXIL [Suspect]
     Dosage: 20MG PER DAY
     Route: 064
  2. LAMICTAL [Concomitant]
     Route: 064

REACTIONS (6)
  - ATRIAL SEPTAL DEFECT [None]
  - RESPIRATORY DISTRESS [None]
  - DRUG EXPOSURE DURING PREGNANCY [None]
  - CARDIAC MURMUR [None]
  - PATENT DUCTUS ARTERIOSUS [None]
  - INTRAVENTRICULAR HAEMORRHAGE [None]
